FAERS Safety Report 5614150-5 (Version None)
Quarter: 2008Q1

REPORT INFORMATION
  Report Type: 
  Country: None (occurrence: None)
  Receive Date: 20080205
  Receipt Date: 20080201
  Transmission Date: 20080703
  Serious: Yes (Hospitalization, Disabling)
  Sender: FDA-Public Use
  Company Number: A0688335A

PATIENT
  Age: 12 Year
  Sex: Male
  Weight: 60 kg

DRUGS (3)
  1. ARRANON [Suspect]
     Dosage: 650MGM2 UNKNOWN
     Route: 042
     Dates: start: 20070901, end: 20070901
  2. METHOTREXATE [Suspect]
     Route: 037
     Dates: start: 20070101
  3. SEPTRA [Concomitant]

REACTIONS (21)
  - ABASIA [None]
  - AREFLEXIA [None]
  - ASPIRATION [None]
  - ASTHENIA [None]
  - BURNING SENSATION [None]
  - DYSARTHRIA [None]
  - DYSPHAGIA [None]
  - EYE DISORDER [None]
  - FACIAL PARESIS [None]
  - FAECAL INCONTINENCE [None]
  - GUILLAIN-BARRE SYNDROME [None]
  - HALLUCINATION [None]
  - HEADACHE [None]
  - MOVEMENT DISORDER [None]
  - NEUROPATHY PERIPHERAL [None]
  - NEUROTOXICITY [None]
  - PERICARDIAL EFFUSION [None]
  - PERIVENTRICULAR LEUKOMALACIA [None]
  - SOMNOLENCE [None]
  - TREMOR [None]
  - URINARY INCONTINENCE [None]
